FAERS Safety Report 12771004 (Version 1)
Quarter: 2016Q3

REPORT INFORMATION
  Report Type: Spontaneous
  Country: US (occurrence: US)
  Receive Date: 20160922
  Receipt Date: 20160922
  Transmission Date: 20161109
  Serious: Yes (Life-Threatening)
  Sender: FDA-Public Use
  Company Number: US-ACS-000446

PATIENT
  Age: 47 Year
  Sex: Female
  Weight: 114 kg

DRUGS (16)
  1. PRANDIN [Concomitant]
     Active Substance: REPAGLINIDE
     Route: 065
  2. COZAAR [Concomitant]
     Active Substance: LOSARTAN POTASSIUM
     Route: 065
  3. AURYXIA 210 MG [Concomitant]
     Dosage: 2 TO 3 TABLETS 3 TIMES A DAY (WITH MEALS)
     Route: 048
  4. CEFAZOLIN FOR INJECTION [Suspect]
     Active Substance: CEFAZOLIN
     Indication: PREOPERATIVE CARE
     Route: 042
     Dates: start: 20160817
  5. LANTUS [Concomitant]
     Active Substance: INSULIN GLARGINE
     Route: 065
  6. SENSIPAR [Concomitant]
     Active Substance: CINACALCET HYDROCHLORIDE
     Route: 065
  7. LASIX [Concomitant]
     Active Substance: FUROSEMIDE
     Route: 065
  8. TRICOR [Concomitant]
     Active Substance: FENOFIBRATE
     Route: 065
  9. MIDAZOLAM [Suspect]
     Active Substance: MIDAZOLAM\MIDAZOLAM HYDROCHLORIDE
     Route: 042
     Dates: start: 20160517
  10. VICTOZA [Concomitant]
     Active Substance: LIRAGLUTIDE
     Route: 042
  11. NEXIUM [Concomitant]
     Active Substance: ESOMEPRAZOLE MAGNESIUM
     Route: 065
  12. VITAMIN B12 [Concomitant]
     Active Substance: CYANOCOBALAMIN
     Route: 030
  13. CALCITRIOL. [Concomitant]
     Active Substance: CALCITRIOL
     Route: 065
  14. FENTANYL 50MCG/ML 55ML MONOJECT SYRINGE [Suspect]
     Active Substance: FENTANYL
     Route: 042
     Dates: start: 20160817
  15. ATENOLOL. [Concomitant]
     Active Substance: ATENOLOL
     Route: 065
  16. PERCOCET 5/325 MG [Concomitant]
     Dosage: 1 TABLET EVERY4 HOURS AS NEEDED FOR PAIN
     Route: 048

REACTIONS (4)
  - Hypotension [Recovered/Resolved]
  - Cardiac arrest [Recovered/Resolved]
  - Bronchospasm [Recovered/Resolved]
  - Hypoxia [Recovered/Resolved]

NARRATIVE: CASE EVENT DATE: 20160817
